FAERS Safety Report 8604626-0 (Version None)
Quarter: 2012Q3

REPORT INFORMATION
  Report Type: 
  Country: None (occurrence: None)
  Receive Date: 20120820
  Receipt Date: 20120815
  Transmission Date: 20120928
  Serious: Yes (Hospitalization, Other)
  Sender: FDA-Public Use
  Company Number: PHEH2011US00500

PATIENT
  Sex: Female
  Weight: 144 kg

DRUGS (16)
  1. CALCIUM [Concomitant]
  2. ZOMETA [Suspect]
     Indication: MULTIPLE MYELOMA
     Dosage: 4 MG
     Route: 042
  3. LOVAZA [Concomitant]
  4. EFFEXOR [Concomitant]
  5. AREDIA [Suspect]
     Dosage: 90 MG, QMO
     Route: 042
  6. PERPHENAZINE [Concomitant]
  7. PANTOPRAZOLE [Concomitant]
  8. FUROSEMIDE [Concomitant]
  9. REVLIMID [Concomitant]
  10. ASPIRIN [Concomitant]
  11. ZETIA [Concomitant]
  12. PREMARIN [Concomitant]
  13. LEUKERAN [Concomitant]
  14. DILTIAZEM [Concomitant]
  15. DEXAMETHASON ^COPHAR^ [Concomitant]
  16. ZOCOR [Concomitant]

REACTIONS (79)
  - ACTINOMYCOSIS [None]
  - DYSPNOEA [None]
  - AORTIC ARTERIOSCLEROSIS [None]
  - URINARY TRACT INFECTION [None]
  - PLEURAL FIBROSIS [None]
  - PURULENT DISCHARGE [None]
  - INFECTION [None]
  - DEFORMITY [None]
  - CARDIOMEGALY [None]
  - OSTEOARTHRITIS [None]
  - BREAST CALCIFICATIONS [None]
  - OSTEOPENIA [None]
  - ANAEMIA [None]
  - CARDIAC FAILURE CONGESTIVE [None]
  - OSTEOSCLEROSIS [None]
  - GINGIVAL BLEEDING [None]
  - SENSITIVITY OF TEETH [None]
  - EXPOSED BONE IN JAW [None]
  - CHEST DISCOMFORT [None]
  - PNEUMONIA [None]
  - PARAKERATOSIS [None]
  - DYSURIA [None]
  - PULMONARY OEDEMA [None]
  - PAIN [None]
  - TOOTHACHE [None]
  - INTERVERTEBRAL DISC PROTRUSION [None]
  - RECTAL HAEMORRHAGE [None]
  - HAEMORRHOIDS [None]
  - DIZZINESS [None]
  - SOFT TISSUE MASS [None]
  - INTERVERTEBRAL DISC SPACE NARROWING [None]
  - SPINAL OSTEOARTHRITIS [None]
  - DERMATOPHYTOSIS [None]
  - POOR DENTAL CONDITION [None]
  - BONE PAIN [None]
  - ARTHRALGIA [None]
  - SWELLING [None]
  - LOOSE TOOTH [None]
  - EMOTIONAL DISTRESS [None]
  - BREAST CYST [None]
  - GASTROOESOPHAGEAL REFLUX DISEASE [None]
  - VAGINAL PROLAPSE [None]
  - OSTEOPOROSIS [None]
  - CHRONIC OBSTRUCTIVE PULMONARY DISEASE [None]
  - SCOLIOSIS [None]
  - ATROPHIC VULVOVAGINITIS [None]
  - OSTEONECROSIS OF JAW [None]
  - INJURY [None]
  - OSTEOMYELITIS [None]
  - MULTIPLE MYELOMA [None]
  - ARTERIOSCLEROSIS CORONARY ARTERY [None]
  - HYPERTENSION [None]
  - LUNG NEOPLASM [None]
  - EPICONDYLITIS [None]
  - VISION BLURRED [None]
  - ORAL TORUS [None]
  - BACK PAIN [None]
  - PYREXIA [None]
  - ANGINA PECTORIS [None]
  - RIB FRACTURE [None]
  - DIVERTICULUM [None]
  - JOINT SWELLING [None]
  - MITRAL VALVE INCOMPETENCE [None]
  - LUNG INFILTRATION [None]
  - NEUROPATHY PERIPHERAL [None]
  - THYROID DISORDER [None]
  - TENDONITIS [None]
  - HIATUS HERNIA [None]
  - LIGAMENT CALCIFICATION [None]
  - RASH [None]
  - BRONCHITIS [None]
  - SPINAL COMPRESSION FRACTURE [None]
  - DEPRESSION [None]
  - PULMONARY EMBOLISM [None]
  - FALL [None]
  - TENDON CALCIFICATION [None]
  - FUNGAL INFECTION [None]
  - LYMPH NODE CALCIFICATION [None]
  - HEADACHE [None]
